FAERS Safety Report 4436371-X (Version None)
Quarter: 2004Q3

REPORT INFORMATION
  Report Type: 
  Country: None (occurrence: None)
  Receive Date: 20040728
  Receipt Date: 20031112
  Transmission Date: 20050211
  Serious: Yes (Hospitalization)
  Sender: FDA-Public Use
  Company Number: 203310

PATIENT
  Sex: Female

DRUGS (1)
  1. RITUXAN [Suspect]

REACTIONS (2)
  - ARTHRALGIA [None]
  - RASH MACULO-PAPULAR [None]
